FAERS Safety Report 16017933 (Version 1)
Quarter: 2019Q1

REPORT INFORMATION
  Report Type: Spontaneous
  Country: US (occurrence: US)
  Receive Date: 20190228
  Receipt Date: 20190228
  Transmission Date: 20190418
  Serious: Yes (Hospitalization)
  Sender: FDA-Public Use
  Company Number: None

PATIENT
  Age: 62 Year
  Sex: Female
  Weight: 55 kg

DRUGS (10)
  1. THALIDOMIDE [Suspect]
     Active Substance: THALIDOMIDE
     Indication: CROHN^S DISEASE
     Route: 048
     Dates: start: 20180924, end: 20190219
  2. BUDESONIDE EC 9 MG BY MOUTH DAILY [Concomitant]
  3. FOLIC ACID, 1 MG BY MOUTH DAILY [Concomitant]
  4. ASPIRIN 81 MG BY MOUTH DAILY [Concomitant]
  5. ATORVASTATIN 10 MG BY MOUTH DAILY [Concomitant]
  6. CHOLECALCIFEROL 2000 UNIT BY MOUTH DAILY [Concomitant]
  7. MAGNESIUM OXIDE, DOSE UNLCEAR, 1 TAB BY MOUTH DAILY [Concomitant]
  8. VEDOLIZUMAB 300 MG IV EVERY 8 WEEKS [Concomitant]
  9. CALCIUM TABS, DOSE UNCLEAR, 2 TABS BY MOUTH DAILY [Concomitant]
  10. RISEDRONATE, 35 MG, 1 TAB BY MOUTH WEEKLY [Concomitant]

REACTIONS (5)
  - Aphasia [None]
  - Paraesthesia [None]
  - Peripheral swelling [None]
  - Dizziness [None]
  - Cerebrovascular accident [None]

NARRATIVE: CASE EVENT DATE: 20190219
